FAERS Safety Report 17302826 (Version 6)
Quarter: 2020Q2

REPORT INFORMATION
  Report Type: Spontaneous
  Country: TR (occurrence: TR)
  Receive Date: 20200122
  Receipt Date: 20200615
  Transmission Date: 20200713
  Serious: Yes (Other)
  Sender: FDA-Public Use
  Company Number: TR-BAYER-2019-235907

PATIENT
  Age: 48 Year
  Sex: Female
  Weight: 61 kg

DRUGS (2)
  1. MIRENA [Suspect]
     Active Substance: LEVONORGESTREL
     Indication: UTERINE ENLARGEMENT
  2. MIRENA [Suspect]
     Active Substance: LEVONORGESTREL
     Indication: MENORRHAGIA
     Dosage: 20 ?G PER DAY, CONTINUOUSLY
     Route: 015
     Dates: start: 201712

REACTIONS (19)
  - Paraesthesia [None]
  - Device breakage [Not Recovered/Not Resolved]
  - Endometrial thickening [None]
  - Musculoskeletal stiffness [Not Recovered/Not Resolved]
  - Hypoaesthesia [Not Recovered/Not Resolved]
  - Post procedural erythema [None]
  - Post procedural pruritus [None]
  - Device dislocation [Not Recovered/Not Resolved]
  - Pain [Not Recovered/Not Resolved]
  - Vaginal odour [None]
  - Vaginal discharge [Not Recovered/Not Resolved]
  - Menstruation irregular [Not Recovered/Not Resolved]
  - Blood oestrogen increased [Recovering/Resolving]
  - Pain in extremity [None]
  - Erythema [Not Recovered/Not Resolved]
  - Abdominal pain lower [Not Recovered/Not Resolved]
  - Pelvic pain [None]
  - Breast pain [None]
  - Breast swelling [Not Recovered/Not Resolved]

NARRATIVE: CASE EVENT DATE: 201712
